FAERS Safety Report 7905054-3 (Version None)
Quarter: 2011Q4

REPORT INFORMATION
  Report Type: 
  Country: None (occurrence: None)
  Receive Date: 20111109
  Receipt Date: 20111104
  Transmission Date: 20120403
  Serious: Yes (Hospitalization)
  Sender: FDA-Public Use
  Company Number: PHHO2011DE04956

PATIENT
  Sex: Male
  Weight: 106 kg

DRUGS (2)
  1. FTY [Suspect]
     Indication: MULTIPLE SCLEROSIS
     Dosage: 0.5 MG, QD
     Route: 048
     Dates: start: 20110215, end: 20110306
  2. ASPIRIN [Concomitant]
     Dosage: UNK

REACTIONS (1)
  - EPILEPSY [None]
